FAERS Safety Report 7540857-9 (Version None)
Quarter: 2011Q2

REPORT INFORMATION
  Report Type: 
  Country: None (occurrence: None)
  Receive Date: 20110603
  Receipt Date: 20110523
  Transmission Date: 20111010
  Serious: Yes (Hospitalization, Other)
  Sender: FDA-Public Use
  Company Number: 2011AC000032

PATIENT
  Sex: Female

DRUGS (9)
  1. ZOPICLONE [Concomitant]
  2. BISOPROLOL FUMARATE [Concomitant]
  3. WARFARIN SODIUM [Concomitant]
  4. DIGOXIN [Suspect]
     Dosage: 0.125 UG;QD
  5. LOSARTAN POTASSIUM [Concomitant]
  6. AMIODARONE HCL [Concomitant]
  7. FUROSEMIDE [Concomitant]
  8. PHENOXYMETHYPENICILLIN [Concomitant]
  9. ROSUVASTATIN [Concomitant]

REACTIONS (5)
  - CONTUSION [None]
  - VISION BLURRED [None]
  - DRUG INTERACTION [None]
  - INTERNATIONAL NORMALISED RATIO INCREASED [None]
  - OEDEMA [None]
